FAERS Safety Report 25566818 (Version 1)
Quarter: 2025Q3

REPORT INFORMATION
  Report Type: Spontaneous
  Country: US (occurrence: None)
  Receive Date: 20250714
  Receipt Date: 20250714
  Transmission Date: 20251020
  Serious: Yes (Life-Threatening, Hospitalization)
  Sender: FDA-CTU
  Company Number: None

PATIENT
  Age: 73 Year
  Sex: Female
  Weight: 44.45 kg

DRUGS (8)
  1. METHOTREXATE (METHOTREXATE SODIUM) [Suspect]
     Active Substance: METHOTREXATE SODIUM
     Indication: Rheumatoid arthritis
     Dosage: FREQUENCY : WEEKLY;?
     Route: 048
     Dates: start: 202403, end: 202505
  2. SYNTHROID [Concomitant]
     Active Substance: LEVOTHYROXINE SODIUM
  3. PEPCID [Concomitant]
     Active Substance: FAMOTIDINE
  4. FOLIC ACID [Concomitant]
     Active Substance: FOLIC ACID
  5. HYDROYCHLOROQUINE [Concomitant]
  6. PREDNISONE [Concomitant]
     Active Substance: PREDNISONE
  7. TEMAZAPAN [Concomitant]
  8. Bach-rescue sleep [Concomitant]

REACTIONS (4)
  - Sinusitis [None]
  - Pneumonitis [None]
  - Abdominal pain lower [None]
  - Blood calcium increased [None]

NARRATIVE: CASE EVENT DATE: 20250502
